FAERS Safety Report 9678969 (Version 1)
Quarter: 2013Q4

REPORT INFORMATION
  Report Type: Spontaneous
  Country: US (occurrence: None)
  Receive Date: 20131107
  Receipt Date: 20131107
  Transmission Date: 20140711
  Serious: Yes (Other)
  Sender: FDA-Public Use
  Company Number: HA13-384-AE

PATIENT
  Sex: 0

DRUGS (1)
  1. EXTENDED PHENYTOIN SODIUM [Suspect]
     Route: 048

REACTIONS (5)
  - Fatigue [None]
  - Somnolence [None]
  - Anticonvulsant drug level increased [None]
  - Product physical issue [None]
  - Toxicity to various agents [None]
